FAERS Safety Report 7933527-6 (Version None)
Quarter: 2011Q4

REPORT INFORMATION
  Report Type: 
  Country: None (occurrence: None)
  Receive Date: 20111118
  Receipt Date: 20111108
  Transmission Date: 20120403
  Serious: Yes (Hospitalization, Other)
  Sender: FDA-Public Use
  Company Number: 2011SP037669

PATIENT
  Age: 72 Year
  Sex: Female

DRUGS (5)
  1. PEG-INTRON [Suspect]
     Indication: HEPATITIS C
     Dates: start: 20110808
  2. TELAPREVOR [Suspect]
     Indication: HEPATITIS C
     Dates: start: 20110801, end: 20111025
  3. PEGASYS [Suspect]
     Indication: HEPATITIS C
     Dates: start: 20050610, end: 20060601
  4. RIBAVIRIN [Suspect]
     Indication: HEPATITIS C
     Dates: start: 20050610, end: 20060610
  5. RIBAVIRIN [Suspect]
     Indication: HEPATITIS C
     Dates: start: 20110801

REACTIONS (21)
  - HEPATITIS C [None]
  - DEPRESSION [None]
  - NEUROPATHY PERIPHERAL [None]
  - VISUAL IMPAIRMENT [None]
  - HYPOAESTHESIA [None]
  - GLAUCOMA [None]
  - ANGER [None]
  - CONDITION AGGRAVATED [None]
  - MUSCULAR WEAKNESS [None]
  - OSTEOARTHRITIS [None]
  - MUSCLE DISORDER [None]
  - MALAISE [None]
  - MEMORY IMPAIRMENT [None]
  - FATIGUE [None]
  - FALL [None]
  - CHOLECYSTITIS INFECTIVE [None]
  - INSOMNIA [None]
  - CHOLELITHIASIS [None]
  - BONE DISORDER [None]
  - BALANCE DISORDER [None]
  - DISEASE RECURRENCE [None]
